FAERS Safety Report 6117202-9 (Version None)
Quarter: 2009Q1

REPORT INFORMATION
  Report Type: 
  Country: None (occurrence: None)
  Receive Date: 20090314
  Receipt Date: 20090106
  Transmission Date: 20090719
  Serious: No
  Sender: FDA-Public Use
  Company Number: US-ABBOTT-09P-163-0496013-00

PATIENT
  Sex: Male
  Weight: 83.99 kg

DRUGS (5)
  1. HUMIRA [Suspect]
     Indication: PSORIATIC ARTHROPATHY
     Route: 058
     Dates: start: 20070101, end: 20081218
  2. HUMIRA [Suspect]
     Route: 058
     Dates: start: 20090105
  3. NABUMETONE [Concomitant]
     Indication: ANTIINFLAMMATORY THERAPY
  4. HYROCODONE [Concomitant]
     Indication: PAIN
  5. TYLENOL (CAPLET) [Concomitant]
     Indication: PAIN

REACTIONS (3)
  - DRUG DELIVERY SYSTEM MALFUNCTION [None]
  - INJECTION SITE IRRITATION [None]
  - NASOPHARYNGITIS [None]
